FAERS Safety Report 7492249-9 (Version None)
Quarter: 2011Q2

REPORT INFORMATION
  Report Type: 
  Country: None (occurrence: None)
  Receive Date: 20110519
  Receipt Date: 20110107
  Transmission Date: 20111010
  Serious: No
  Sender: FDA-Public Use
  Company Number: US-NOVEN-11US001557

PATIENT
  Sex: Female

DRUGS (3)
  1. DAYTRANA [Suspect]
     Indication: PRODUCT USED FOR UNKNOWN INDICATION
     Dosage: 10 MG, 1X/DAY: QD
     Route: 062
     Dates: start: 20100701, end: 20101101
  2. DAYTRANA [Suspect]
     Dosage: 15 MG, 1X/DAY: QD
     Route: 062
     Dates: start: 20101101
  3. DAYTRANA [Suspect]
     Dosage: 15 MG, 1X/DAY: QD
     Route: 062
     Dates: start: 20101101

REACTIONS (3)
  - APPLICATION SITE IRRITATION [None]
  - WRONG TECHNIQUE IN DRUG USAGE PROCESS [None]
  - PRODUCT QUALITY ISSUE [None]
